FAERS Safety Report 7151652-7 (Version None)
Quarter: 2010Q4

REPORT INFORMATION
  Report Type: 
  Country: None (occurrence: None)
  Receive Date: 20101123
  Receipt Date: 20101018
  Transmission Date: 20110411
  Serious: No
  Sender: FDA-Public Use
  Company Number: 007931

PATIENT
  Sex: Female

DRUGS (4)
  1. CIMZIA [Suspect]
     Indication: RHEUMATOID ARTHRITIS
     Dosage: (SUBCUTANEOUS) ; (400 MG 1X/MONTH SUBCUTANEOUS) ; (400 MG 1X/MONTH SUBCUTANEOUS)
     Route: 058
     Dates: start: 20081122
  2. CIMZIA [Suspect]
     Indication: RHEUMATOID ARTHRITIS
     Dosage: (SUBCUTANEOUS) ; (400 MG 1X/MONTH SUBCUTANEOUS) ; (400 MG 1X/MONTH SUBCUTANEOUS)
     Route: 058
     Dates: start: 20090221
  3. CIMZIA [Suspect]
     Indication: RHEUMATOID ARTHRITIS
     Dosage: (SUBCUTANEOUS) ; (400 MG 1X/MONTH SUBCUTANEOUS) ; (400 MG 1X/MONTH SUBCUTANEOUS)
     Route: 058
     Dates: start: 20100918
  4. CIMZIA [Suspect]

REACTIONS (2)
  - ABDOMINAL PAIN [None]
  - INJECTION SITE PAIN [None]
